FAERS Safety Report 6732328-4 (Version None)
Quarter: 2010Q2

REPORT INFORMATION
  Report Type: 
  Country: None (occurrence: None)
  Receive Date: 20100519
  Receipt Date: 20100510
  Transmission Date: 20101027
  Serious: Yes (Other)
  Sender: FDA-Public Use
  Company Number: US-JNJFOC-20100503086

PATIENT
  Age: 9 Month
  Sex: Male
  Weight: 9.07 kg

DRUGS (4)
  1. CHILDREN'S MOTRIN [Suspect]
     Route: 048
  2. CHILDREN'S MOTRIN [Suspect]
     Indication: PYREXIA
     Route: 048
  3. CHILDRENS TYLENOL [Suspect]
     Route: 048
  4. CHILDRENS TYLENOL [Suspect]
     Indication: PYREXIA
     Route: 048

REACTIONS (3)
  - ABDOMINAL PAIN UPPER [None]
  - HAEMATOCHEZIA [None]
  - PRODUCT QUALITY ISSUE [None]
